FAERS Safety Report 21926051 (Version 1)
Quarter: 2023Q1

REPORT INFORMATION
  Report Type: Spontaneous
  Country: US (occurrence: None)
  Receive Date: 20230129
  Receipt Date: 20230129
  Transmission Date: 20230418
  Serious: Yes (Other)
  Sender: FDA-Public Use
  Company Number: None

PATIENT
  Age: 63 Year
  Sex: Female
  Weight: 76.5 kg

DRUGS (6)
  1. HERBALS\MITRAGYNINE [Suspect]
     Active Substance: HERBALS\MITRAGYNINE
     Indication: Asthenia
     Route: 048
     Dates: start: 20230108, end: 20230126
  2. Pain medications, unknown names [Concomitant]
  3. A lot of vitamins [Concomitant]
  4. VITAMINS [Concomitant]
     Active Substance: VITAMINS
  5. GARLIC [Concomitant]
     Active Substance: GARLIC
  6. VITAMIN C [Concomitant]
     Active Substance: ASCORBIC ACID

REACTIONS (5)
  - Delusion [None]
  - Euphoric mood [None]
  - Dysarthria [None]
  - Balance disorder [None]
  - Amnesia [None]

NARRATIVE: CASE EVENT DATE: 20230121
